FAERS Safety Report 22761465 (Version 4)
Quarter: 2024Q1

REPORT INFORMATION
  Report Type: Spontaneous
  Country: US (occurrence: US)
  Receive Date: 20230728
  Receipt Date: 20240202
  Transmission Date: 20240409
  Serious: Yes (Other)
  Sender: FDA-Public Use
  Company Number: US-PFIZER INC-PV202300129487

PATIENT
  Age: 77 Year
  Sex: Female
  Weight: 66.213 kg

DRUGS (4)
  1. IBRANCE [Suspect]
     Active Substance: PALBOCICLIB
     Indication: Breast cancer female
     Dosage: TAKE 1 PO QD FOR 21 CONSECUTIVE DAYS 21 DAYS ON 7 DAYS OFF
     Route: 048
  2. ZOMETA [Concomitant]
     Active Substance: ZOLEDRONIC ACID
     Dosage: UNK, EVERY 3 MONTHS
  3. FEMARA [Concomitant]
     Active Substance: LETROZOLE
     Dosage: UNK
  4. ORENCIA [Concomitant]
     Active Substance: ABATACEPT
     Dosage: UNK

REACTIONS (4)
  - Leukopenia [Unknown]
  - Bell^s palsy [Recovering/Resolving]
  - Fatigue [Unknown]
  - Vision blurred [Unknown]

NARRATIVE: CASE EVENT DATE: 20211216
